FAERS Safety Report 24061576 (Version 1)
Quarter: 2024Q3

REPORT INFORMATION
  Report Type: Report from Study
  Country: US (occurrence: US)
  Receive Date: 20240708
  Receipt Date: 20240708
  Transmission Date: 20241016
  Serious: No
  Sender: ALEXION PHARMACEUTICALS
  Company Number: US-ALXN-202407USA000021US

PATIENT
  Sex: Male

DRUGS (1)
  1. STRENSIQ [Suspect]
     Active Substance: ASFOTASE ALFA
     Indication: Product used for unknown indication
     Dosage: 160 MILLIGRAM, TIW
     Route: 065

REACTIONS (10)
  - Product dose omission in error [Unknown]
  - Injection site pain [Unknown]
  - Injection site atrophy [Unknown]
  - Injection site swelling [Unknown]
  - Injection site mass [Unknown]
  - Dental caries [Unknown]
  - Illness [Unknown]
  - Fibroma [Unknown]
  - Loss of personal independence in daily activities [Recovered/Resolved]
  - Pain [Recovered/Resolved]
